FAERS Safety Report 19934989 (Version 1)
Quarter: 2021Q4

REPORT INFORMATION
  Report Type: Report from Study
  Country: CA (occurrence: CA)
  Receive Date: 20211008
  Receipt Date: 20211008
  Transmission Date: 20220303
  Serious: Yes (Other)
  Sender: FDA-Public Use
  Company Number: CA-BAYER-2021-192631

PATIENT
  Sex: Male

DRUGS (1)
  1. STIVARGA [Suspect]
     Active Substance: REGORAFENIB
     Indication: Colorectal cancer metastatic
     Dosage: 80 MG DAILY ON DAYS 1 TO 7, 120 MG DAILY ON DAYS 8-14, 160 MG DAILY ON DAYS 15 TO 21
     Route: 048

REACTIONS (2)
  - Blood pressure fluctuation [None]
  - Off label use [Unknown]
